FAERS Safety Report 23787672 (Version 1)
Quarter: 2024Q2

REPORT INFORMATION
  Report Type: Spontaneous
  Country: GB (occurrence: GB)
  Receive Date: 20240426
  Receipt Date: 20240426
  Transmission Date: 20240716
  Serious: Yes (Other)
  Sender: FDA-Public Use
  Company Number: None

PATIENT
  Age: 67 Year
  Sex: Male
  Weight: 100 kg

DRUGS (11)
  1. EZETIMIBE [Suspect]
     Active Substance: EZETIMIBE
     Indication: Ill-defined disorder
     Dosage: TAKE ONE TABLET ONCE DAILY
     Route: 065
     Dates: start: 20240305, end: 20240415
  2. EZETIMIBE [Suspect]
     Active Substance: EZETIMIBE
     Indication: Ill-defined disorder
     Route: 065
     Dates: start: 20240415
  3. LANSOPRAZOLE [Concomitant]
     Active Substance: LANSOPRAZOLE
     Indication: Ill-defined disorder
     Dosage: TAKE TWO A DAY
     Route: 065
     Dates: start: 20210501
  4. RAMIPRIL [Concomitant]
     Active Substance: RAMIPRIL
     Indication: Ill-defined disorder
     Dosage: TAKE ONE DAILY
     Route: 065
     Dates: start: 20210501
  5. CO-DYDRAMOL [Concomitant]
     Active Substance: ACETAMINOPHEN\DIHYDROCODEINE
     Indication: Ill-defined disorder
     Dosage: TAKE 1 OR 2 4 TIMES/DAY
     Route: 065
     Dates: start: 20210501
  6. DOXAZOSIN [Concomitant]
     Active Substance: DOXAZOSIN MESYLATE
     Indication: Ill-defined disorder
     Dosage: TAKE ONE DAILY
     Route: 065
     Dates: start: 20231115
  7. GABAPENTIN [Concomitant]
     Active Substance: GABAPENTIN
     Indication: Ill-defined disorder
     Dosage: TIME INTERVAL: 0.33333333 DAYS: TAKE ONE 3 TIMES/DAY
     Route: 065
     Dates: start: 20220510
  8. BECLOMETHASONE DIPROPIONATE [Concomitant]
     Active Substance: BECLOMETHASONE DIPROPIONATE
     Indication: Ill-defined disorder
     Dosage: TWO PUFFS TWICE DAILY
     Route: 065
     Dates: start: 20211111
  9. AMLODIPINE [Concomitant]
     Active Substance: AMLODIPINE BESYLATE
     Indication: Ill-defined disorder
     Dosage: TAKE ONE DAILY
     Route: 065
     Dates: start: 20210501
  10. AMITRIPTYLINE HYDROCHLORIDE [Concomitant]
     Active Substance: AMITRIPTYLINE HYDROCHLORIDE
     Indication: Ill-defined disorder
     Dosage: TAKE 1 AT NIGHT
     Route: 065
     Dates: start: 20220510
  11. SILDENAFIL [Concomitant]
     Active Substance: SILDENAFIL
     Indication: Ill-defined disorder
     Dosage: USE AS DIRECTED
     Route: 065
     Dates: start: 20210501

REACTIONS (2)
  - Blood creatine phosphokinase increased [Unknown]
  - Musculoskeletal pain [Unknown]

NARRATIVE: CASE EVENT DATE: 20240415
